FAERS Safety Report 9492791 (Version 1)
Quarter: 2013Q3

REPORT INFORMATION
  Report Type: Spontaneous
  Country: GB (occurrence: GB)
  Receive Date: 20130830
  Receipt Date: 20130830
  Transmission Date: 20140515
  Serious: Yes (Other)
  Sender: FDA-Public Use
  Company Number: GB-ASTRAZENECA-2013SE65156

PATIENT
  Age: 40 Year
  Sex: Female
  Weight: 55 kg

DRUGS (2)
  1. SYMBICORT [Suspect]
     Indication: ASTHMA
     Dosage: UNKNOWN DOSE AND FREQUENCY
     Route: 055
     Dates: start: 2007
  2. SYMBICORT [Suspect]
     Indication: ASTHMA
     Dosage: 1 DF, DAILY
     Route: 055
     Dates: start: 20130810, end: 20130812

REACTIONS (4)
  - Dyspnoea [Recovering/Resolving]
  - Anxiety [Recovering/Resolving]
  - Hypotension [Recovering/Resolving]
  - Palpitations [Recovering/Resolving]
